FAERS Safety Report 7945415-X (Version None)
Quarter: 2011Q4

REPORT INFORMATION
  Report Type: 
  Country: None (occurrence: None)
  Receive Date: 20111129
  Receipt Date: 20111118
  Transmission Date: 20120403
  Serious: Yes (Death)
  Sender: FDA-Public Use
  Company Number: US-CELGENEUS-163-21880-11112953

PATIENT
  Sex: Male

DRUGS (11)
  1. REVLIMID [Suspect]
     Dosage: 15 MILLIGRAM
     Route: 048
     Dates: start: 20090901
  2. DIOVAN [Concomitant]
     Route: 065
  3. REVLIMID [Suspect]
     Dosage: 10 MILLIGRAM
     Route: 048
     Dates: start: 20100201
  4. ACETAMINOPHEN [Concomitant]
     Route: 065
  5. REVLIMID [Suspect]
     Indication: MULTIPLE MYELOMA
     Dosage: 15 MILLIGRAM
     Route: 048
     Dates: start: 20090201
  6. DECADRON [Concomitant]
     Route: 065
  7. GABAPENTIN [Concomitant]
     Route: 065
  8. LANTUS [Concomitant]
     Route: 065
  9. COUMADIN [Concomitant]
     Route: 065
  10. FUROSEMIDE [Concomitant]
     Route: 065
  11. HYDROCODONE [Concomitant]
     Route: 065

REACTIONS (1)
  - DEATH [None]
